FAERS Safety Report 25433571 (Version 1)
Quarter: 2025Q2

REPORT INFORMATION
  Report Type: Spontaneous
  Country: US (occurrence: None)
  Receive Date: 20250613
  Receipt Date: 20250613
  Transmission Date: 20250716
  Serious: No
  Sender: MDD OPERATIONS
  Company Number: US-MDD US Operations-MDD202501-000132

PATIENT
  Age: 73 Year
  Sex: Male

DRUGS (16)
  1. APOKYN [Suspect]
     Active Substance: APOMORPHINE HYDROCHLORIDE
     Indication: Parkinson^s disease
     Dosage: 30MG/3ML
  2. APOKYN [Suspect]
     Active Substance: APOMORPHINE HYDROCHLORIDE
  3. OMEPRAZOLE [Concomitant]
     Active Substance: OMEPRAZOLE
  4. LEVOTHYROXINE [Concomitant]
     Active Substance: LEVOTHYROXINE
  5. SERTRALINE [Concomitant]
     Active Substance: SERTRALINE HYDROCHLORIDE
  6. ROSUVASTATIN CALCIUM [Concomitant]
     Active Substance: ROSUVASTATIN CALCIUM
  7. DUTASTERIDE [Concomitant]
     Active Substance: DUTASTERIDE
  8. NOVOLIN NOS [Concomitant]
     Active Substance: INSULIN HUMAN
  9. RIVASTIGMINE [Concomitant]
     Active Substance: RIVASTIGMINE
  10. CRANBERRY [Concomitant]
     Active Substance: CRANBERRY
  11. JARDIANCE [Concomitant]
     Active Substance: EMPAGLIFLOZIN
  12. RYTARY [Concomitant]
     Active Substance: CARBIDOPA\LEVODOPA
  13. NOURIANZ [Concomitant]
     Active Substance: ISTRADEFYLLINE
  14. TAMSULOSIN [Concomitant]
     Active Substance: TAMSULOSIN
  15. METFORMIN [Concomitant]
     Active Substance: METFORMIN HYDROCHLORIDE
  16. SODIUM BICARBONATE [Concomitant]
     Active Substance: SODIUM BICARBONATE

REACTIONS (1)
  - Abnormal behaviour [Unknown]
